FAERS Safety Report 25010107 (Version 2)
Quarter: 2025Q1

REPORT INFORMATION
  Report Type: Spontaneous
  Country: US (occurrence: US)
  Receive Date: 20250225
  Receipt Date: 20250303
  Transmission Date: 20250409
  Serious: No
  Sender: PFIZER
  Company Number: US-PFIZER INC-202400173486

PATIENT
  Age: 85 Year
  Sex: Female

DRUGS (17)
  1. XELJANZ XR [Suspect]
     Active Substance: TOFACITINIB CITRATE
  2. ASPIRIN [Concomitant]
     Active Substance: ASPIRIN
  3. ATENOLOL [Concomitant]
     Active Substance: ATENOLOL
  4. CHLORTHALIDONE [Concomitant]
     Active Substance: CHLORTHALIDONE
  5. VITAMIN D3 [Concomitant]
     Active Substance: CHOLECALCIFEROL
  6. COENZYME Q10 [Concomitant]
     Active Substance: DIETARY SUPPLEMENT\UBIDECARENONE
  7. DICLOFENAC [Concomitant]
     Active Substance: DICLOFENAC
  8. FOLIC ACID [Concomitant]
     Active Substance: FOLIC ACID
  9. LEQVIO [Concomitant]
     Active Substance: INCLISIRAN SODIUM
  10. LIDOCAINE [Concomitant]
     Active Substance: LIDOCAINE
  11. LOSARTAN POTASSIUM [Concomitant]
     Active Substance: LOSARTAN POTASSIUM
  12. MAGNESIUM [Concomitant]
     Active Substance: MAGNESIUM
  13. METHOTREXATE [Concomitant]
     Active Substance: METHOTREXATE
  14. OMEGA-3 FATTY ACIDS [Concomitant]
     Active Substance: OMEGA-3 FATTY ACIDS
  15. OMEPRAZOLE [Concomitant]
     Active Substance: OMEPRAZOLE
  16. TRAZODONE [Concomitant]
     Active Substance: TRAZODONE HYDROCHLORIDE
  17. DIETARY SUPPLEMENT [Concomitant]
     Active Substance: DIETARY SUPPLEMENT

REACTIONS (1)
  - Viral infection [Unknown]
